FAERS Safety Report 9626470 (Version 1)
Quarter: 2013Q4

REPORT INFORMATION
  Report Type: Report from Study
  Country: RS (occurrence: RS)
  Receive Date: 20131016
  Receipt Date: 20131016
  Transmission Date: 20140711
  Serious: Yes (Other)
  Sender: FDA-Public Use
  Company Number: RS-ROCHE-1289335

PATIENT
  Age: 60 Year
  Sex: Female

DRUGS (1)
  1. SOMATROPIN [Suspect]
     Indication: TURNER^S SYNDROME
     Dosage: 0.045-0.05 MG GH/KG
     Route: 065

REACTIONS (1)
  - Congenital jaw malformation [Unknown]
